FAERS Safety Report 5382072-3 (Version None)
Quarter: 2007Q2

REPORT INFORMATION
  Report Type: 
  Country: None (occurrence: None)
  Receive Date: 20070629
  Receipt Date: 20070423
  Transmission Date: 20071010
  Serious: Yes (Other)
  Sender: FDA-Public Use
  Company Number: PHEH2007US03402

PATIENT
  Age: 2 Year
  Sex: Male
  Weight: 16 kg

DRUGS (4)
  1. EXJADE [Suspect]
     Indication: THALASSAEMIA
     Dosage: 375 MG, QD, ORAL : 300 MG, QD, ORAL : 300 MG, QD, ORAL : 125 MG, QD, ORAL
     Route: 048
     Dates: start: 20070101, end: 20070101
  2. EXJADE [Suspect]
     Indication: THALASSAEMIA
     Dosage: 375 MG, QD, ORAL : 300 MG, QD, ORAL : 300 MG, QD, ORAL : 125 MG, QD, ORAL
     Route: 048
     Dates: start: 20061101, end: 20070122
  3. EXJADE [Suspect]
     Indication: THALASSAEMIA
     Dosage: 375 MG, QD, ORAL : 300 MG, QD, ORAL : 300 MG, QD, ORAL : 125 MG, QD, ORAL
     Route: 048
     Dates: start: 20070201, end: 20070201
  4. EXJADE [Suspect]
     Indication: THALASSAEMIA
     Dosage: 375 MG, QD, ORAL : 300 MG, QD, ORAL : 300 MG, QD, ORAL : 125 MG, QD, ORAL
     Route: 048
     Dates: start: 20070321

REACTIONS (3)
  - ALANINE AMINOTRANSFERASE INCREASED [None]
  - ASPARTATE AMINOTRANSFERASE INCREASED [None]
  - HEPATIC ENZYME INCREASED [None]
